FAERS Safety Report 8511492-0 (Version None)
Quarter: 2012Q3

REPORT INFORMATION
  Report Type: 
  Country: None (occurrence: None)
  Receive Date: 20120711
  Receipt Date: 20120711
  Transmission Date: 20120928
  Serious: Yes (Other)
  Sender: FDA-Public Use
  Company Number: None

PATIENT
  Age: 73 Year
  Sex: Female
  Weight: 92.0802 kg

DRUGS (7)
  1. LOSARTAN POTASSIUM [Suspect]
  2. LOSARTAN POTASSIUM [Suspect]
     Indication: TACHYCARDIA
     Dosage: 100 MG 1 PER DAY PER OS ; 100 MG 1 PER DAY PER OS
     Dates: start: 20100101, end: 20120628
  3. LOSARTAN POTASSIUM [Suspect]
     Indication: BLOOD PRESSURE INCREASED
     Dosage: 100 MG 1 PER DAY PER OS ; 100 MG 1 PER DAY PER OS
     Dates: start: 20100101, end: 20120628
  4. LOSARTAN POTASSIUM [Suspect]
     Indication: DYSPNOEA
     Dosage: 100 MG 1 PER DAY PER OS ; 100 MG 1 PER DAY PER OS
     Dates: start: 20100101, end: 20120628
  5. LOSARTAN POTASSIUM [Suspect]
     Indication: TACHYCARDIA
     Dosage: 100 MG 1 PER DAY PER OS ; 100 MG 1 PER DAY PER OS
     Dates: start: 20111001, end: 20111101
  6. LOSARTAN POTASSIUM [Suspect]
     Indication: BLOOD PRESSURE INCREASED
     Dosage: 100 MG 1 PER DAY PER OS ; 100 MG 1 PER DAY PER OS
     Dates: start: 20111001, end: 20111101
  7. LOSARTAN POTASSIUM [Suspect]
     Indication: DYSPNOEA
     Dosage: 100 MG 1 PER DAY PER OS ; 100 MG 1 PER DAY PER OS
     Dates: start: 20111001, end: 20111101

REACTIONS (28)
  - INCONTINENCE [None]
  - BACK PAIN [None]
  - BEDRIDDEN [None]
  - VISION BLURRED [None]
  - INFLUENZA [None]
  - FIBROMYALGIA [None]
  - HIATUS HERNIA [None]
  - ALOPECIA [None]
  - RASH [None]
  - URINE OUTPUT DECREASED [None]
  - DYSSTASIA [None]
  - DYSPNOEA [None]
  - URINARY TRACT INFECTION [None]
  - TACHYCARDIA [None]
  - DIABETES MELLITUS [None]
  - WHEEZING [None]
  - PRURITUS [None]
  - VERTIGO [None]
  - PAIN [None]
  - FATIGUE [None]
  - PATHOGEN RESISTANCE [None]
  - CONSTIPATION [None]
  - ANXIETY [None]
  - BLOOD PRESSURE INCREASED [None]
  - WEIGHT INCREASED [None]
  - ANAEMIA [None]
  - PNEUMONIA [None]
  - ABASIA [None]
